FAERS Safety Report 9325394 (Version 3)
Quarter: 2014Q1

REPORT INFORMATION
  Report Type: Spontaneous
  Country: US (occurrence: US)
  Receive Date: 20130604
  Receipt Date: 20140115
  Transmission Date: 20141002
  Serious: Yes (Hospitalization, Other)
  Sender: FDA-Public Use
  Company Number: US-ASTRAZENECA-2013SE33660

PATIENT
  Age: 44 Year
  Sex: Female
  Weight: 94.3 kg

DRUGS (27)
  1. NEXIUM [Suspect]
     Indication: GASTROOESOPHAGEAL REFLUX DISEASE
     Route: 048
     Dates: start: 2002, end: 2003
  2. NEXIUM [Suspect]
     Indication: GASTROOESOPHAGEAL REFLUX DISEASE
     Route: 048
     Dates: start: 201207, end: 2013
  3. NEXIUM [Suspect]
     Indication: GASTROOESOPHAGEAL REFLUX DISEASE
     Route: 048
     Dates: start: 20080227
  4. NEXIUM [Suspect]
     Indication: GASTROOESOPHAGEAL REFLUX DISEASE
     Route: 048
     Dates: start: 20120827
  5. OMEPRAZOLE [Suspect]
     Indication: GASTROOESOPHAGEAL REFLUX DISEASE
     Route: 048
     Dates: start: 20130814
  6. ACIPHEX [Concomitant]
     Dates: start: 2002
  7. PROTONIX [Concomitant]
     Indication: GASTROOESOPHAGEAL REFLUX DISEASE
     Dates: start: 2011
  8. PREVACID [Concomitant]
     Indication: GASTROOESOPHAGEAL REFLUX DISEASE
     Dates: start: 2001, end: 2002
  9. PREVACID [Concomitant]
     Indication: GASTROOESOPHAGEAL REFLUX DISEASE
     Dates: start: 2008, end: 2009
  10. PEPCID [Concomitant]
     Indication: GASTROOESOPHAGEAL REFLUX DISEASE
  11. LORATADINE [Concomitant]
  12. PRAVASTATIN [Concomitant]
  13. NASONEX [Concomitant]
  14. ATRIPLA [Concomitant]
  15. NORCO [Concomitant]
  16. LOSARTAN [Concomitant]
  17. ADVAIR [Concomitant]
  18. ALBUTEROL [Concomitant]
  19. ELIDEL [Concomitant]
  20. XANAX [Concomitant]
  21. VALIUM [Concomitant]
  22. AZITHROMYCIN [Concomitant]
  23. VENLAFAXINE [Concomitant]
     Dates: start: 20130213
  24. PROMETHAZINE [Concomitant]
     Dates: start: 20130531
  25. CARISOPRODOL [Concomitant]
     Dates: start: 20080204
  26. ZOLPIDEM TARTRATE [Concomitant]
     Dates: start: 20080303
  27. BUSPIRON HCL [Concomitant]
     Dates: start: 20080402

REACTIONS (18)
  - Pneumonia [Unknown]
  - Uterine disorder [Unknown]
  - Fall [Unknown]
  - Ankle fracture [Unknown]
  - Bone neoplasm [Unknown]
  - Osteoporosis [Unknown]
  - Osteopenia [Unknown]
  - Urinary tract infection [Unknown]
  - Pain [Unknown]
  - Angina pectoris [Unknown]
  - Arthritis [Unknown]
  - Calcium deficiency [Unknown]
  - Chronic obstructive pulmonary disease [Unknown]
  - Vitamin D deficiency [Unknown]
  - Rickets [Unknown]
  - Multiple fractures [Unknown]
  - Liver disorder [Unknown]
  - Urticaria [Unknown]
